FAERS Safety Report 5703869-3 (Version None)
Quarter: 2008Q2

REPORT INFORMATION
  Report Type: 
  Country: None (occurrence: None)
  Receive Date: 20080414
  Receipt Date: 20080403
  Transmission Date: 20081010
  Serious: Yes (Death)
  Sender: FDA-Public Use
  Company Number: US-ELI_LILLY_AND_COMPANY-US200804001163

PATIENT
  Age: 47 Year
  Sex: Female

DRUGS (2)
  1. SYMBYAX [Suspect]
     Dosage: 1 D/F, UNK
     Dates: start: 20080201
  2. AMBIEN [Concomitant]
     Dosage: 10 MG, UNK

REACTIONS (1)
  - COMPLETED SUICIDE [None]
